FAERS Safety Report 9063251 (Version 1)
Quarter: 2013Q1

REPORT INFORMATION
  Report Type: Spontaneous
  Country: JP (occurrence: JP)
  Receive Date: 20130213
  Receipt Date: 20130213
  Transmission Date: 20140127
  Serious: Yes (Hospitalization)
  Sender: FDA-Public Use
  Company Number: JP-GLAXOSMITHKLINE-B0866237A

PATIENT
  Age: 67 None
  Sex: Female

DRUGS (14)
  1. VALTREX [Suspect]
     Indication: HERPES ZOSTER
     Dosage: 500MG TWICE PER DAY
     Route: 048
     Dates: start: 20130129
  2. ZOVIRAX [Suspect]
     Indication: HERPES ZOSTER
     Dosage: 250MG TWICE PER DAY
     Route: 065
     Dates: start: 2013
  3. ZOSYN [Concomitant]
     Route: 042
  4. METHYCOBAL [Concomitant]
     Route: 065
  5. LOXONIN [Concomitant]
     Route: 065
  6. CALONAL [Concomitant]
     Route: 065
  7. PRAZAXA [Concomitant]
     Route: 048
  8. FLUITRAN [Concomitant]
     Route: 048
  9. ALDACTONE A [Concomitant]
     Route: 048
  10. TRAMCET [Concomitant]
     Route: 048
  11. TRYPTANOL [Concomitant]
     Route: 048
  12. DIART [Concomitant]
     Route: 048
  13. NOVAMIN (PROCHLORPERAZINE MALEATE) [Concomitant]
     Route: 065
  14. NEXIUM [Concomitant]
     Route: 048

REACTIONS (3)
  - Altered state of consciousness [Not Recovered/Not Resolved]
  - Renal failure acute [Not Recovered/Not Resolved]
  - Acute hepatic failure [Not Recovered/Not Resolved]
